FAERS Safety Report 10101326 (Version 1)
Quarter: 2014Q2

REPORT INFORMATION
  Report Type: Spontaneous
  Country: US (occurrence: US)
  Receive Date: 20140424
  Receipt Date: 20140424
  Transmission Date: 20141212
  Serious: Yes (Other)
  Sender: FDA-Public Use
  Company Number: US-BAYER-2014-057603

PATIENT
  Age: 67 Year
  Sex: Female

DRUGS (2)
  1. MAGNEVIST [Suspect]
     Indication: NUCLEAR MAGNETIC RESONANCE IMAGING
     Dosage: 13 ML, UNK
     Route: 042
     Dates: start: 20140416, end: 20140416
  2. MAGNEVIST [Suspect]
     Indication: CAROTID ARTERY DISEASE

REACTIONS (5)
  - Dyspnoea [Recovered/Resolved]
  - Neck pain [Recovered/Resolved]
  - Chest pain [Recovered/Resolved]
  - Musculoskeletal pain [Recovered/Resolved]
  - Wheezing [Recovered/Resolved]
